FAERS Safety Report 14186744 (Version 1)
Quarter: 2017Q4

REPORT INFORMATION
  Report Type: Spontaneous
  Country: US (occurrence: None)
  Receive Date: 20171112
  Receipt Date: 20171112
  Transmission Date: 20180321
  Serious: No
  Sender: FDA-Public Use
  Company Number: None

PATIENT
  Age: 90 Year
  Sex: Male

DRUGS (1)
  1. XTANDI [Suspect]
     Active Substance: ENZALUTAMIDE
     Indication: PROSTATE CANCER
     Dosage: 4X40MG=160MG
     Route: 048
     Dates: start: 20170830

REACTIONS (2)
  - Asthenia [None]
  - Confusional state [None]

NARRATIVE: CASE EVENT DATE: 20170915
